FAERS Safety Report 6297371-0 (Version None)
Quarter: 2009Q3

REPORT INFORMATION
  Report Type: 
  Country: None (occurrence: None)
  Receive Date: 20090805
  Receipt Date: 20090729
  Transmission Date: 20100115
  Serious: Yes (Death, Hospitalization)
  Sender: FDA-Public Use
  Company Number: US-JNJFOC-20060700414

PATIENT
  Sex: Female
  Weight: 90.72 kg

DRUGS (9)
  1. ORTHO EVRA [Suspect]
     Indication: MENSTRUATION IRREGULAR
     Route: 062
  2. TESTOSTERONE 2% CREAM [Concomitant]
     Indication: LIBIDO DECREASED
  3. ADVAIR HFA [Concomitant]
     Indication: ASTHMA
  4. SINGULAIR [Concomitant]
     Indication: ASTHMA
  5. ZYRTEC [Concomitant]
     Indication: ASTHMA
  6. ACETAMINOPHEN [Concomitant]
     Indication: DRUG USE FOR UNKNOWN INDICATION
  7. TESTOSTERONE [Concomitant]
     Indication: LIBIDO DECREASED
  8. AMITRIPTYLINE HCL [Concomitant]
  9. PSEUDOEPHEDRINE HCL [Concomitant]

REACTIONS (1)
  - PULMONARY EMBOLISM [None]
